FAERS Safety Report 14821145 (Version 1)
Quarter: 2018Q2

REPORT INFORMATION
  Report Type: Spontaneous
  Country: US (occurrence: US)
  Receive Date: 20180427
  Receipt Date: 20180427
  Transmission Date: 20180711
  Serious: No
  Sender: FDA-Public Use
  Company Number: US-PURDUE-USA-2018-0142525

PATIENT
  Age: 11 Year
  Sex: Male

DRUGS (3)
  1. APTENSIO XR [Suspect]
     Active Substance: METHYLPHENIDATE HYDROCHLORIDE
     Indication: DISTURBANCE IN ATTENTION
     Dosage: 40 MG, DAILY
     Route: 048
     Dates: start: 20170321
  2. INTUNIV [Concomitant]
     Active Substance: GUANFACINE HYDROCHLORIDE
     Indication: ATTENTION DEFICIT/HYPERACTIVITY DISORDER
     Dosage: UNK
     Route: 065
  3. APTENSIO XR [Suspect]
     Active Substance: METHYLPHENIDATE HYDROCHLORIDE
     Indication: ATTENTION DEFICIT/HYPERACTIVITY DISORDER

REACTIONS (5)
  - Disturbance in attention [Unknown]
  - Defiant behaviour [Unknown]
  - Abnormal behaviour [Unknown]
  - Intentional dose omission [Recovered/Resolved]
  - Impulsive behaviour [Unknown]

NARRATIVE: CASE EVENT DATE: 201801
